FAERS Safety Report 8817102 (Version 1)
Quarter: 2012Q4

REPORT INFORMATION
  Report Type: Spontaneous
  Country: US (occurrence: None)
  Receive Date: 20121003
  Receipt Date: 20121003
  Transmission Date: 20130627
  Serious: Yes (Hospitalization)
  Sender: FDA-Public Use
  Company Number: None

PATIENT
  Age: 38 Year
  Sex: Male
  Weight: 79.83 kg

DRUGS (3)
  1. CELEXA [Suspect]
     Indication: ANXIETY
     Route: 048
     Dates: start: 20111011, end: 20111011
  2. CYMBALTA [Suspect]
     Indication: PAIN OF EXTREMITIES
     Route: 048
     Dates: start: 20111214, end: 20111214
  3. CYMBALTA [Suspect]
     Indication: ANXIETY
     Route: 048
     Dates: start: 20111214, end: 20111214

REACTIONS (19)
  - Burning sensation [None]
  - Hyperhidrosis [None]
  - Loss of consciousness [None]
  - Atrial fibrillation [None]
  - Neck pain [None]
  - Chest pain [None]
  - Musculoskeletal chest pain [None]
  - Dizziness [None]
  - Head discomfort [None]
  - Hypoaesthesia [None]
  - Asthenia [None]
  - Asthenia [None]
  - Chest discomfort [None]
  - Abdominal distension [None]
  - Nausea [None]
  - Fatigue [None]
  - Fatigue [None]
  - Chills [None]
  - Feeling jittery [None]
